FAERS Safety Report 7421414-1 (Version None)
Quarter: 2011Q2

REPORT INFORMATION
  Report Type: 
  Country: None (occurrence: None)
  Receive Date: 20110418
  Receipt Date: 20110407
  Transmission Date: 20111010
  Serious: Yes (Hospitalization, Other)
  Sender: FDA-Public Use
  Company Number: CN-ASTRAZENECA-2011SE19789

PATIENT
  Age: 64 Year
  Sex: Female

DRUGS (3)
  1. CHINESE CATERPILLAR FUNGUS [Concomitant]
     Route: 048
     Dates: start: 20070501
  2. IRESSA [Suspect]
     Indication: NON-SMALL CELL LUNG CANCER
     Route: 048
     Dates: start: 20070501, end: 20110101
  3. LUCID GANODERMA [Concomitant]

REACTIONS (2)
  - FALL [None]
  - CEREBRAL HAEMORRHAGE [None]
